FAERS Safety Report 9541340 (Version 1)
Quarter: 2013Q3

REPORT INFORMATION
  Report Type: Spontaneous
  Country: US (occurrence: None)
  Receive Date: 20130919
  Receipt Date: 20130919
  Transmission Date: 20140515
  Serious: Yes (Death)
  Sender: FDA-Public Use
  Company Number: None

PATIENT
  Age: 75 Year
  Sex: Male
  Weight: 70.76 kg

DRUGS (7)
  1. WARFARIN [Suspect]
     Indication: PULMONARY EMBOLISM
     Dosage: 7.5MG QD
     Dates: start: 20130326, end: 20130912
  2. ENALAPRIL, HYDROCHLOROTHIAZIDE [Concomitant]
  3. TOPIRAMATE, 25MG, TEVA [Concomitant]
  4. PHENYTOIN, [Concomitant]
  5. LEVETIRACETAM, [Concomitant]
  6. ESOMEPRAZOLE, [Concomitant]
  7. TESTOSTERONE [Concomitant]

REACTIONS (3)
  - Vomiting projectile [None]
  - Blood pressure increased [None]
  - Subdural haematoma [None]
